FAERS Safety Report 8175446-9 (Version None)
Quarter: 2012Q1

REPORT INFORMATION
  Report Type: 
  Country: None (occurrence: None)
  Receive Date: 20120229
  Receipt Date: 20120222
  Transmission Date: 20120608
  Serious: Yes (Other)
  Sender: FDA-Public Use
  Company Number: JP-ROCHE-1036984

PATIENT
  Sex: Female
  Weight: 48 kg

DRUGS (13)
  1. ASPIRIN [Suspect]
     Indication: CEREBRAL INFARCTION
     Route: 048
  2. ALFAROL [Concomitant]
     Route: 048
  3. MIRCERA [Suspect]
     Indication: NEPHROGENIC ANAEMIA
     Route: 042
     Dates: start: 20111003, end: 20111017
  4. MIRCERA [Suspect]
     Route: 042
     Dates: start: 20111114, end: 20111114
  5. RENAGEL [Concomitant]
     Indication: HYPERPHOSPHATAEMIA
     Route: 048
  6. ALDOMET [Concomitant]
     Indication: HYPERTENSION
     Route: 048
  7. MIRCERA [Suspect]
     Route: 042
     Dates: start: 20111212, end: 20111212
  8. CALCIUM CARBONATE [Concomitant]
     Indication: HYPERPHOSPHATAEMIA
     Route: 048
  9. OMEPRAZOLE [Concomitant]
     Indication: GASTRITIS
     Route: 048
  10. MIRCERA [Suspect]
     Route: 042
     Dates: start: 20120113
  11. ARGAMATE [Concomitant]
     Indication: HYPERKALAEMIA
     Route: 048
  12. MUCOSTA [Concomitant]
     Indication: GASTRITIS
     Route: 048
  13. ATELEC [Concomitant]
     Indication: HYPERTENSION
     Route: 048

REACTIONS (2)
  - ANAEMIA [None]
  - PERIPHERAL ARTERIAL OCCLUSIVE DISEASE [None]
